FAERS Safety Report 18089114 (Version 3)
Quarter: 2021Q1

REPORT INFORMATION
  Report Type: Report from Study
  Country: US (occurrence: US)
  Receive Date: 20200729
  Receipt Date: 20210125
  Transmission Date: 20210419
  Serious: Yes (Hospitalization, Other)
  Sender: FDA-Public Use
  Company Number: US-AMGEN-USASP2020120608

PATIENT
  Age: 80 Year
  Sex: Female

DRUGS (2)
  1. OTEZLA [Suspect]
     Active Substance: APREMILAST
     Indication: PSORIASIS
     Dosage: 30 MILLIGRAM, BID
     Route: 048
     Dates: start: 20200423, end: 20200513
  2. OTEZLA [Suspect]
     Active Substance: APREMILAST
     Dosage: HALF TABLET AND ONE TABLET
     Route: 048
     Dates: start: 20200519, end: 202012

REACTIONS (8)
  - Wrong technique in product usage process [Unknown]
  - Nephrolithiasis [Recovered/Resolved]
  - Abdominal discomfort [Unknown]
  - Heart rate increased [Unknown]
  - Product prescribing error [Unknown]
  - Psoriasis [Unknown]
  - Weight decreased [Unknown]
  - Agitation [Unknown]

NARRATIVE: CASE EVENT DATE: 2020
